FAERS Safety Report 20591338 (Version 1)
Quarter: 2022Q1

REPORT INFORMATION
  Report Type: Other
  Country: US (occurrence: None)
  Receive Date: 20220314
  Receipt Date: 20220314
  Transmission Date: 20220423
  Serious: Yes (Death, Hospitalization)
  Sender: FDA-Public Use
  Company Number: US-ROCHE-3043536

PATIENT
  Age: 60 Year
  Sex: Male

DRUGS (1)
  1. OBINUTUZUMAB [Suspect]
     Active Substance: OBINUTUZUMAB
     Indication: Chronic lymphocytic leukaemia
     Route: 042

REACTIONS (5)
  - COVID-19 [Fatal]
  - Septic shock [Unknown]
  - Respiratory failure [Unknown]
  - Renal injury [Unknown]
  - Acute kidney injury [Unknown]
